FAERS Safety Report 23594200 (Version 3)
Quarter: 2024Q4

REPORT INFORMATION
  Report Type: Report from Study
  Country: US (occurrence: US)
  Receive Date: 20240305
  Receipt Date: 20241031
  Transmission Date: 20250115
  Serious: Yes (Hospitalization, Other)
  Sender: TEVA
  Company Number: US-TEVA-VS-3164098

PATIENT
  Age: 71 Year
  Sex: Female

DRUGS (7)
  1. AUSTEDO [Suspect]
     Active Substance: DEUTETRABENAZINE
     Indication: Tardive dyskinesia
     Route: 048
  2. AUSTEDO [Suspect]
     Active Substance: DEUTETRABENAZINE
     Indication: Tardive dyskinesia
     Route: 048
  3. AMITRIPTYLINE [Concomitant]
     Active Substance: AMITRIPTYLINE
     Indication: Product used for unknown indication
  4. Isosorbide D [Concomitant]
     Indication: Product used for unknown indication
  5. Oxycodone HC [Concomitant]
     Indication: Product used for unknown indication
  6. Trazodone HC [Concomitant]
     Indication: Product used for unknown indication
  7. AUSTEDO XR [Suspect]
     Active Substance: DEUTETRABENAZINE
     Indication: Tardive dyskinesia
     Route: 048

REACTIONS (16)
  - Urinary tract infection [Recovered/Resolved]
  - Swollen tongue [Unknown]
  - Speech disorder [Not Recovered/Not Resolved]
  - Malaise [Not Recovered/Not Resolved]
  - Fatigue [Not Recovered/Not Resolved]
  - Dyskinesia [Not Recovered/Not Resolved]
  - Insomnia [Not Recovered/Not Resolved]
  - Sleep disorder [Not Recovered/Not Resolved]
  - Disturbance in attention [Not Recovered/Not Resolved]
  - Restlessness [Not Recovered/Not Resolved]
  - Limb discomfort [Unknown]
  - Depression [Not Recovered/Not Resolved]
  - Asthenia [Unknown]
  - Bruxism [Not Recovered/Not Resolved]
  - Insurance issue [Unknown]
  - Loss of personal independence in daily activities [Not Recovered/Not Resolved]
